FAERS Safety Report 10595043 (Version 1)
Quarter: 2014Q4

REPORT INFORMATION
  Report Type: Spontaneous
  Country: US (occurrence: None)
  Receive Date: 20141119
  Receipt Date: 20141119
  Transmission Date: 20150529
  Serious: Yes (Other)
  Sender: FDA-Public Use
  Company Number: None

PATIENT
  Age: 62 Year
  Sex: Female
  Weight: 79.38 kg

DRUGS (3)
  1. BACTRIM [Suspect]
     Active Substance: SULFAMETHOXAZOLE\TRIMETHOPRIM
     Indication: VIRAL INFECTION
     Dosage: TAKEN BY MOUTH
  2. BACTRIM [Suspect]
     Active Substance: SULFAMETHOXAZOLE\TRIMETHOPRIM
     Indication: SINUS DISORDER
     Dosage: TAKEN BY MOUTH
  3. BACTRIM [Suspect]
     Active Substance: SULFAMETHOXAZOLE\TRIMETHOPRIM
     Indication: GASTROENTERITIS VIRAL
     Dosage: TAKEN BY MOUTH

REACTIONS (4)
  - Abdominal distension [None]
  - Diarrhoea [None]
  - Transplant rejection [None]
  - Abdominal discomfort [None]
